FAERS Safety Report 5956653-X (Version None)
Quarter: 2008Q4

REPORT INFORMATION
  Report Type: 
  Country: None (occurrence: None)
  Receive Date: 20081118
  Receipt Date: 20071217
  Transmission Date: 20090506
  Serious: Yes (Life-Threatening)
  Sender: FDA-Public Use
  Company Number: JP-ASTRAZENECA-2007AC02478

PATIENT
  Age: 39 Year
  Sex: Female
  Weight: 52 kg

DRUGS (3)
  1. ROPIVACAINE [Suspect]
     Indication: EPIDURAL ANAESTHESIA
     Route: 008
  2. ASPIRIN [Concomitant]
     Dosage: EVERY 3 DAYS.
  3. PREDNISOLONE [Concomitant]

REACTIONS (5)
  - CARDIAC ARREST [None]
  - CONVULSION [None]
  - DRUG EXPOSURE DURING PREGNANCY [None]
  - DRUG TOXICITY [None]
  - VENTRICULAR TACHYCARDIA [None]
